FAERS Safety Report 7673717-3 (Version None)
Quarter: 2011Q3

REPORT INFORMATION
  Report Type: 
  Country: None (occurrence: None)
  Receive Date: 20110810
  Receipt Date: 20100319
  Transmission Date: 20111222
  Serious: No
  Sender: FDA-Public Use
  Company Number: US-BAYER-201017845NA

PATIENT
  Sex: Female

DRUGS (1)
  1. MIRENA [Suspect]

REACTIONS (7)
  - AMENORRHOEA [None]
  - FATIGUE [None]
  - WEIGHT INCREASED [None]
  - LOSS OF LIBIDO [None]
  - BACK PAIN [None]
  - BREAST TENDERNESS [None]
  - BREAST ENLARGEMENT [None]
